FAERS Safety Report 16541752 (Version 2)
Quarter: 2019Q4

REPORT INFORMATION
  Report Type: Spontaneous
  Country: US (occurrence: US)
  Receive Date: 20190708
  Receipt Date: 20191029
  Transmission Date: 20200122
  Serious: No
  Sender: FDA-Public Use
  Company Number: US-LEXICON PHARMACEUTICALS, INC-19-1606-00661

PATIENT
  Sex: Female

DRUGS (19)
  1. LEVOTHYROXIN [Concomitant]
     Active Substance: LEVOTHYROXINE
  2. FELODIPINE. [Concomitant]
     Active Substance: FELODIPINE
  3. LAMOTRIGINE. [Concomitant]
     Active Substance: LAMOTRIGINE
  4. OCTREOTIDE ACETATE. [Concomitant]
     Active Substance: OCTREOTIDE ACETATE
  5. SIMVASTATIN. [Concomitant]
     Active Substance: SIMVASTATIN
  6. ALIGN [Concomitant]
     Active Substance: BIFIDOBACTERIUM LONGUM SUBSP. INFANTIS
  7. LOMOTIL [Concomitant]
     Active Substance: ATROPINE SULFATE\DIPHENOXYLATE HYDROCHLORIDE
  8. SPIRONOLACTONE. [Concomitant]
     Active Substance: SPIRONOLACTONE
  9. COREG [Concomitant]
     Active Substance: CARVEDILOL
  10. OLANZAPINE. [Concomitant]
     Active Substance: OLANZAPINE
  11. WARFARIN [Concomitant]
     Active Substance: WARFARIN
  12. DIPHENOXYLATE [Concomitant]
     Active Substance: DIPHENOXYLATE
  13. TELOTRISTAT ETHYL [Suspect]
     Active Substance: TELOTRISTAT ETHYL
     Indication: CARCINOID TUMOUR
     Route: 048
     Dates: start: 20190523
  14. PROTONIX [Concomitant]
     Active Substance: PANTOPRAZOLE SODIUM
  15. TORSEMIDE. [Concomitant]
     Active Substance: TORSEMIDE
  16. BUPROPION. [Concomitant]
     Active Substance: BUPROPION
  17. MULTIVITAMIN [Concomitant]
     Active Substance: VITAMINS
  18. RISPERDAL [Concomitant]
     Active Substance: RISPERIDONE
  19. FEXOFENADINE [Concomitant]
     Active Substance: FEXOFENADINE HYDROCHLORIDE

REACTIONS (2)
  - Fatigue [Unknown]
  - Diarrhoea [Not Recovered/Not Resolved]
